FAERS Safety Report 6033843-1 (Version None)
Quarter: 2009Q1

REPORT INFORMATION
  Report Type: 
  Country: None (occurrence: None)
  Receive Date: 20090109
  Receipt Date: 20090109
  Transmission Date: 20090719
  Serious: Yes (Other)
  Sender: FDA-Public Use
  Company Number: None

PATIENT
  Age: 62 Year
  Sex: Female

DRUGS (5)
  1. ZOMETA [Suspect]
     Indication: NEOPLASM MALIGNANT
     Dosage: 4 MG MONTHLY
     Dates: start: 20070101, end: 20070601
  2. AROMASIN [Concomitant]
  3. FAMASA [Concomitant]
  4. XELODA [Concomitant]
  5. PRILOSEC [Concomitant]

REACTIONS (1)
  - OSTEONECROSIS [None]
